FAERS Safety Report 6100372-6 (Version None)
Quarter: 2009Q1

REPORT INFORMATION
  Report Type: 
  Country: None (occurrence: None)
  Receive Date: 20090227
  Receipt Date: 20090227
  Transmission Date: 20090719
  Serious: No
  Sender: FDA-Public Use
  Company Number: None

PATIENT
  Age: 69 Year
  Sex: Male
  Weight: 97.98 kg

DRUGS (1)
  1. METFORMIN HCL [Suspect]
     Indication: DIABETES MELLITUS
     Dosage: 1000 MG BID PO
     Route: 048
     Dates: start: 20080606, end: 20090120

REACTIONS (4)
  - DIARRHOEA [None]
  - DRUG INTOLERANCE [None]
  - NAUSEA [None]
  - VOMITING [None]
